FAERS Safety Report 7878238-0 (Version None)
Quarter: 2011Q4

REPORT INFORMATION
  Report Type: 
  Country: None (occurrence: None)
  Receive Date: 20111101
  Receipt Date: 20111020
  Transmission Date: 20120403
  Serious: Yes (Hospitalization)
  Sender: FDA-Public Use
  Company Number: DE-AMGEN-DEUSP2011054924

PATIENT
  Age: 70 Year
  Sex: Female

DRUGS (2)
  1. ENBREL [Suspect]
     Indication: RHEUMATOID ARTHRITIS
     Dosage: 25 MG, 2X/WEEK
     Dates: start: 20070705
  2. VOLTAREN [Concomitant]
     Dosage: UNK UNK, UNK

REACTIONS (2)
  - TONGUE CYST [None]
  - PHARYNGITIS [None]
